FAERS Safety Report 10563984 (Version 1)
Quarter: 2014Q4

REPORT INFORMATION
  Report Type: Spontaneous
  Country: DK (occurrence: DK)
  Receive Date: 20141104
  Receipt Date: 20141104
  Transmission Date: 20150529
  Serious: Yes (Death, Life-Threatening, Hospitalization)
  Sender: FDA-Public Use
  Company Number: DK-ROXANE LABORATORIES, INC.-2014-RO-01659RO

PATIENT
  Age: 27 Year
  Sex: Male
  Weight: 12.5 kg

DRUGS (1)
  1. QUETIAPINE FUMARATE. [Suspect]
     Active Substance: QUETIAPINE FUMARATE
     Indication: ANXIETY DISORDER
     Route: 065

REACTIONS (5)
  - Acute respiratory distress syndrome [Unknown]
  - Pancreatitis acute [Unknown]
  - Diabetic ketoacidosis [Unknown]
  - Multi-organ failure [Fatal]
  - Hypertriglyceridaemia [Unknown]
